FAERS Safety Report 9424316 (Version 2)
Quarter: 2014Q1

REPORT INFORMATION
  Report Type: Spontaneous
  Country: US (occurrence: US)
  Receive Date: 20130729
  Receipt Date: 20140131
  Transmission Date: 20141002
  Serious: Yes (Other)
  Sender: FDA-Public Use
  Company Number: US-ROCHE-1056095

PATIENT
  Age: 32 Year
  Sex: Male
  Weight: 81.72 kg

DRUGS (3)
  1. ACCUTANE [Suspect]
     Indication: ACNE
     Route: 065
     Dates: start: 1994
  2. ACCUTANE [Suspect]
     Route: 065
     Dates: start: 199608, end: 199612
  3. ACCUTANE [Suspect]
     Route: 065
     Dates: start: 20000720, end: 20001212

REACTIONS (4)
  - Colitis ulcerative [Unknown]
  - Inflammatory bowel disease [Unknown]
  - Large intestine polyp [Unknown]
  - Anal fissure [Unknown]
